FAERS Safety Report 11279828 (Version 2)
Quarter: 2015Q3

REPORT INFORMATION
  Report Type: Spontaneous
  Country: IE (occurrence: IE)
  Receive Date: 20150717
  Receipt Date: 20150803
  Transmission Date: 20151125
  Serious: Yes (Hospitalization, Other)
  Sender: FDA-Public Use
  Company Number: IE-BAYER-2015-375348

PATIENT
  Sex: Female

DRUGS (1)
  1. MIRENA [Suspect]
     Active Substance: LEVONORGESTREL
     Indication: CONTRACEPTION
     Dosage: 20 MCG/24HR, CONT
     Route: 015
     Dates: start: 20131114

REACTIONS (7)
  - Vaginal discharge [None]
  - Abdominal tenderness [None]
  - Ruptured ectopic pregnancy [None]
  - Drug ineffective [None]
  - Ectopic pregnancy with contraceptive device [None]
  - Abdominal pain lower [None]
  - Vulvovaginitis streptococcal [None]

NARRATIVE: CASE EVENT DATE: 2014
